FAERS Safety Report 4289435-8 (Version None)
Quarter: 2004Q1

REPORT INFORMATION
  Report Type: 
  Country: None (occurrence: None)
  Receive Date: 20040206
  Receipt Date: 20040206
  Transmission Date: 20041129
  Serious: Yes (Other)
  Sender: FDA-Public Use
  Company Number: None

PATIENT
  Age: 7 Year
  Sex: Male
  Weight: 29.0302 kg

DRUGS (1)
  1. STRATTERA/ATOMOXETINE HCL  18 MG LILLY [Suspect]
     Indication: ATTENTION DEFICIT/HYPERACTIVITY DISORDER
     Dosage: 18 MG ONCE PER D
     Dates: start: 20040131, end: 20040202

REACTIONS (1)
  - ABDOMINAL PAIN UPPER [None]
